FAERS Safety Report 9440723 (Version 1)
Quarter: 2013Q3

REPORT INFORMATION
  Report Type: Spontaneous
  Country: US (occurrence: US)
  Receive Date: 20130805
  Receipt Date: 20130805
  Transmission Date: 20140515
  Serious: Yes (Hospitalization, Other)
  Sender: FDA-Public Use
  Company Number: US-UCBSA-093411

PATIENT
  Age: 40 Year
  Sex: Female

DRUGS (5)
  1. CIMZIA [Suspect]
     Indication: RHEUMATOID ARTHRITIS
     Route: 058
  2. COUMADIN [Concomitant]
     Indication: HYPERTENSION
     Route: 048
     Dates: start: 201111
  3. SULFAZINE EC [Concomitant]
     Indication: RHEUMATOID ARTHRITIS
     Dosage: 30,000 TOTAL DAILY DOSE, 500MG PER TAB X 6 TABS
     Route: 048
     Dates: start: 2000
  4. MOBIC [Concomitant]
     Indication: ARTHRALGIA
     Route: 048
     Dates: start: 201105
  5. LISINOPRIL/HCTZ [Concomitant]
     Indication: HYPERTENSION
     Dosage: 10/12.5 MG
     Route: 048
     Dates: start: 20130131

REACTIONS (7)
  - Vaginal haemorrhage [Recovered/Resolved]
  - Uterine cyst [Recovered/Resolved]
  - Menorrhagia [Recovered/Resolved]
  - Endometriosis [Recovered/Resolved]
  - Deep vein thrombosis [Recovered/Resolved]
  - Pulmonary thrombosis [Recovered/Resolved]
  - Hypertension [Recovered/Resolved]
